FAERS Safety Report 6023176-1 (Version None)
Quarter: 2008Q4

REPORT INFORMATION
  Report Type: 
  Country: None (occurrence: None)
  Receive Date: 20081230
  Receipt Date: 20081223
  Transmission Date: 20090506
  Serious: Yes (Hospitalization)
  Sender: FDA-Public Use
  Company Number: B0552220A

PATIENT
  Sex: Female

DRUGS (4)
  1. PROPAFENONE HYDROCHLORIDE [Suspect]
     Indication: ATRIAL FIBRILLATION
     Dosage: 450MG PER DAY
     Dates: start: 20070101
  2. DIGOXIN [Suspect]
     Indication: ATRIAL FIBRILLATION
     Route: 048
     Dates: start: 20070101, end: 20081020
  3. SINTROM [Concomitant]
     Indication: ATRIAL FIBRILLATION
     Route: 048
     Dates: end: 20081001
  4. LOSARTAN [Concomitant]
     Dosage: 25MG PER DAY
     Route: 048
     Dates: end: 20081001

REACTIONS (2)
  - BRADYARRHYTHMIA [None]
  - THERAPEUTIC AGENT TOXICITY [None]
